FAERS Safety Report 5939337-3 (Version None)
Quarter: 2008Q4

REPORT INFORMATION
  Report Type: 
  Country: None (occurrence: None)
  Receive Date: 20081103
  Receipt Date: 20081021
  Transmission Date: 20090506
  Serious: Yes (Death, Hospitalization)
  Sender: FDA-Public Use
  Company Number: FR-ELI_LILLY_AND_COMPANY-FR200810005160

PATIENT
  Sex: Male

DRUGS (17)
  1. ZYPREXA [Suspect]
     Dosage: 5 MG, 2/D
     Route: 048
     Dates: start: 20080611, end: 20080721
  2. ZYPREXA [Suspect]
     Dosage: 10 MG, 2/D
     Route: 048
     Dates: start: 20080722
  3. INIPOMP [Concomitant]
     Dosage: 20 MG, DAILY (1/D)
     Route: 048
  4. TAHOR [Concomitant]
     Dosage: 10 MG, DAILY (1/D)
  5. AMLOD [Concomitant]
     Dosage: 5 MG, DAILY (1/D)
  6. KARDEGIC [Concomitant]
     Dosage: 75 MG, DAILY (1/D)
  7. ESIDRIX [Concomitant]
     Dosage: 25 MG, DAILY (1/D)
  8. TRIATEC [Concomitant]
     Dosage: 5 MG, DAILY (1/D)
  9. NOVOLOG [Concomitant]
  10. DOLIPRANE [Concomitant]
  11. RIVOTRIL [Concomitant]
     Dates: start: 20080611, end: 20080708
  12. IMOVANE [Concomitant]
     Dates: start: 20080611, end: 20080625
  13. ATARAX [Concomitant]
     Dosage: 25 MG, DAILY (1/D)
     Dates: start: 20080529, end: 20080613
  14. TERCIAN [Concomitant]
     Route: 048
     Dates: start: 20080611, end: 20080703
  15. SERESTA [Concomitant]
     Dosage: 10 MG, 3/D
     Route: 048
     Dates: start: 20080703, end: 20080722
  16. EQUANIL [Concomitant]
     Dosage: 400 MG, 2/D
     Route: 048
     Dates: start: 20080722
  17. EXELON [Concomitant]
     Dosage: 3 MG, 2/D
     Route: 048
     Dates: start: 20080722

REACTIONS (4)
  - FALL [None]
  - INJURY [None]
  - PNEUMONIA ASPIRATION [None]
  - SOMNOLENCE [None]
